FAERS Safety Report 24780194 (Version 1)
Quarter: 2024Q4

REPORT INFORMATION
  Report Type: Spontaneous
  Country: US (occurrence: US)
  Receive Date: 20241227
  Receipt Date: 20241227
  Transmission Date: 20250114
  Serious: No
  Sender: ROCHE
  Company Number: US-ROCHE-10000164483

PATIENT
  Age: 38 Year
  Sex: Female

DRUGS (1)
  1. XOLAIR [Suspect]
     Active Substance: OMALIZUMAB
     Indication: Product used for unknown indication
     Route: 065

REACTIONS (14)
  - Psoriasis [Unknown]
  - Pain in extremity [Unknown]
  - Synovial cyst [Unknown]
  - Androgens increased [Unknown]
  - Polycystic ovarian syndrome [Unknown]
  - Haemorrhoids [Unknown]
  - Fatigue [Unknown]
  - Paraesthesia [Unknown]
  - Clostridium colitis [Unknown]
  - Rash [Unknown]
  - Rash [Unknown]
  - Constipation [Unknown]
  - Arthralgia [Unknown]
  - Antibody test positive [Unknown]
